FAERS Safety Report 16533494 (Version 1)
Quarter: 2019Q3

REPORT INFORMATION
  Report Type: Spontaneous
  Country: BE (occurrence: BE)
  Receive Date: 20190704
  Receipt Date: 20190704
  Transmission Date: 20191004
  Serious: Yes (Other)
  Sender: FDA-Public Use
  Company Number: BE-009507513-1907BEL000529

PATIENT
  Age: 79 Year
  Sex: Female

DRUGS (1)
  1. PEMBROLIZUMAB. [Suspect]
     Active Substance: PEMBROLIZUMAB
     Indication: NON-SMALL CELL LUNG CANCER
     Dosage: 200 MILLIGRAM, Q3W

REACTIONS (5)
  - Immune-mediated adverse reaction [Recovered/Resolved]
  - Immune-mediated enterocolitis [Recovered/Resolved]
  - Rash [Recovered/Resolved]
  - Myasthenia gravis [Recovered/Resolved]
  - Pericarditis [Recovered/Resolved]
